FAERS Safety Report 10258958 (Version 3)
Quarter: 2014Q2

REPORT INFORMATION
  Report Type: Report from Study
  Country: DE (occurrence: DE)
  Receive Date: 20140625
  Receipt Date: 20140627
  Transmission Date: 20141212
  Serious: Yes (Hospitalization)
  Sender: FDA-Public Use
  Company Number: DE-ASTRAZENECA-2014SE27178

PATIENT
  Age: 76 Year
  Sex: Male
  Weight: 76 kg

DRUGS (7)
  1. AZD6140 [Suspect]
     Indication: PERIPHERAL ARTERIAL OCCLUSIVE DISEASE
     Route: 048
     Dates: start: 20130905, end: 20140413
  2. OMEPRAZOLE [Concomitant]
     Indication: GASTRITIS PROPHYLAXIS
     Route: 048
     Dates: start: 2004
  3. DELIX [Concomitant]
     Indication: HYPERTENSION
     Dosage: 5/12.5
     Route: 048
     Dates: start: 2006
  4. METOPROLOL [Concomitant]
     Indication: HYPERTENSION
     Route: 048
     Dates: start: 2006
  5. FUROSEMID [Concomitant]
     Indication: HYPERTENSION
     Route: 048
     Dates: start: 2008
  6. SIMVASTATIN [Concomitant]
     Indication: HYPERLIPIDAEMIA
     Route: 048
     Dates: start: 2008
  7. SALBUTAMOL [Concomitant]
     Indication: CHRONIC OBSTRUCTIVE PULMONARY DISEASE
     Route: 055
     Dates: start: 2009

REACTIONS (2)
  - Large intestinal ulcer haemorrhage [Recovered/Resolved]
  - Colitis ischaemic [Recovering/Resolving]
